FAERS Safety Report 6971262-1 (Version None)
Quarter: 2010Q3

REPORT INFORMATION
  Report Type: 
  Country: None (occurrence: None)
  Receive Date: 20100908
  Receipt Date: 20100903
  Transmission Date: 20110219
  Serious: Yes (Hospitalization)
  Sender: FDA-Public Use
  Company Number: SG-BRISTOL-MYERS SQUIBB COMPANY-15263064

PATIENT
  Age: 61 Year
  Sex: Female

DRUGS (4)
  1. METFORMIN HCL [Suspect]
  2. SIMVASTATIN [Suspect]
  3. OMEPRAZOLE [Suspect]
  4. CLOPIDOGREL BISULFATE [Suspect]

REACTIONS (1)
  - DRUG RASH WITH EOSINOPHILIA AND SYSTEMIC SYMPTOMS [None]
